FAERS Safety Report 25173477 (Version 5)
Quarter: 2025Q2

REPORT INFORMATION
  Report Type: Spontaneous
  Country: US (occurrence: US)
  Receive Date: 20250408
  Receipt Date: 20250508
  Transmission Date: 20250717
  Serious: No
  Sender: PFIZER
  Company Number: US-PFIZER INC-202500065583

PATIENT
  Age: 12 Year
  Sex: Male

DRUGS (1)
  1. GENOTROPIN [Suspect]
     Active Substance: SOMATROPIN
     Dosage: 2.2 MG, DAILY, INJECTION

REACTIONS (4)
  - Drug dose omission by device [Unknown]
  - Device material issue [Unknown]
  - Device difficult to use [Unknown]
  - Device physical property issue [Unknown]
